FAERS Safety Report 22632934 (Version 7)
Quarter: 2023Q4

REPORT INFORMATION
  Report Type: Other
  Country: KR (occurrence: None)
  Receive Date: 20230623
  Receipt Date: 20231003
  Transmission Date: 20240110
  Serious: Yes (Hospitalization)
  Sender: FDA-Public Use
  Company Number: KR-ROCHE-3371845

PATIENT
  Age: 46 Year
  Sex: Female
  Weight: 62.5 kg

DRUGS (7)
  1. ATEZOLIZUMAB [Suspect]
     Active Substance: ATEZOLIZUMAB
     Indication: Breast cancer
     Dosage: ON 23/JUN/2023, 13/JUL/2023, PATIENT HAD SUBSEQUENT DOSES OF ATEZOLIZUMAB 1200 MG WAS ADMINISTERED.
     Route: 041
     Dates: start: 20230601
  2. NEURONTIN CAP [Concomitant]
     Dosage: 1VIAL
     Route: 042
     Dates: start: 20230516
  3. XGEVA [Concomitant]
     Active Substance: DENOSUMAB
     Dosage: 120MG/1.7ML
     Dates: start: 20221117
  4. OXYCODONE HYDROCHLORIDE [Concomitant]
     Active Substance: OXYCODONE HYDROCHLORIDE
     Dates: start: 20230516
  5. TARGIN PR [Concomitant]
     Dosage: 5MG/2.5MG
     Dates: start: 20230516
  6. URSODIOL [Concomitant]
     Active Substance: URSODIOL
     Dates: start: 20230223
  7. MAGNESIUM OXIDE [Concomitant]
     Active Substance: MAGNESIUM OXIDE
     Dates: start: 20221222

REACTIONS (9)
  - Pyrexia [Recovered/Resolved]
  - Headache [Recovered/Resolved]
  - Aspartate aminotransferase increased [Recovered/Resolved]
  - Alanine aminotransferase increased [Recovered/Resolved]
  - Dizziness [Recovered/Resolved]
  - Nausea [Recovered/Resolved]
  - Aspartate aminotransferase increased [Not Recovered/Not Resolved]
  - Hypothyroidism [Not Recovered/Not Resolved]
  - Pneumonia [Not Recovered/Not Resolved]

NARRATIVE: CASE EVENT DATE: 20230618
